FAERS Safety Report 20130569 (Version 6)
Quarter: 2023Q1

REPORT INFORMATION
  Report Type: Spontaneous
  Country: DE (occurrence: DE)
  Receive Date: 20211130
  Receipt Date: 20230216
  Transmission Date: 20230417
  Serious: Yes (Hospitalization, Other)
  Sender: FDA-Public Use
  Company Number: None

PATIENT
  Age: 78 Year
  Sex: Male
  Weight: 90 kg

DRUGS (17)
  1. SPIRONOLACTONE [Suspect]
     Active Substance: SPIRONOLACTONE
     Indication: Product used for unknown indication
     Dosage: 50 MILLIGRAM (50 MG, 0.5-0-0-0, TABLET)
     Route: 048
  2. SPIRONOLACTONE [Suspect]
     Active Substance: SPIRONOLACTONE
     Dosage: UNK
     Route: 048
  3. ALLOPURINOL [Suspect]
     Active Substance: ALLOPURINOL
     Indication: Product used for unknown indication
     Dosage: 100 MILLIGRAM, QD (1-0-0-0)
     Route: 048
  4. AMOXICILLIN\CLAVULANIC ACID [Suspect]
     Active Substance: AMOXICILLIN\CLAVULANIC ACID
     Indication: Product used for unknown indication
     Dosage: UNK (875/125 MG, 1-0-1-0)
     Route: 048
  5. SORAFENIB [Suspect]
     Active Substance: SORAFENIB
     Indication: Product used for unknown indication
     Dosage: UNK
     Route: 048
  6. CLARITHROMYCIN [Suspect]
     Active Substance: CLARITHROMYCIN
     Indication: Product used for unknown indication
     Dosage: 500 MILLIGRAM, BID, (1-0-1-0, TABLET)
     Route: 048
  7. RAMIPRIL [Suspect]
     Active Substance: RAMIPRIL
     Indication: Product used for unknown indication
     Dosage: 5 MILLIGRAM, QD, ,5 MG, 1-0-0-0, TABLET
     Route: 048
  8. RAMIPRIL [Suspect]
     Active Substance: RAMIPRIL
     Indication: Product used for unknown indication
     Dosage: 10 MILLIGRAM, QD (5 MG, BID (1-0-1-0))
     Route: 048
  9. TINZAPARIN [Concomitant]
     Active Substance: TINZAPARIN
     Indication: Product used for unknown indication
     Dosage: 18000 INTERNATIONAL UNIT, QD
     Route: 058
  10. TINZAPARIN [Concomitant]
     Active Substance: TINZAPARIN
     Dosage: 20000 IU,QD20000 IE, 0-0-1-0, PRE-FILLED SYRINGE
     Route: 058
  11. AMPHOTERICIN B [Concomitant]
     Active Substance: AMPHOTERICIN B
     Indication: Product used for unknown indication
     Dosage: 400 MILLIGRAM, QD (100 MG (1-1-1-1))
     Route: 048
  12. CETIRIZINE HYDROCHLORIDE [Concomitant]
     Active Substance: CETIRIZINE HYDROCHLORIDE
     Dosage: 10 MILLIGRAM, QD, 10 MG, 1-0-0-0, TABLET
     Route: 048
  13. TORSEMIDE [Concomitant]
     Active Substance: TORSEMIDE
     Dosage: 5 MILLIGRAM, 1-0.5-0-0, TABLET
     Route: 048
  14. CHOLESTYRAMINE [Concomitant]
     Active Substance: CHOLESTYRAMINE
     Dosage: 4 GRAM, Q6H,QID,1-1-1-1, ORAL SUSPENSION POWDER
     Route: 048
  15. PREGABALIN [Concomitant]
     Active Substance: PREGABALIN
     Dosage: 25 UNK
     Route: 048
  16. PREGABALIN [Concomitant]
     Active Substance: PREGABALIN
     Dosage: 25 MILLIGRAM, QD, 25 MG,QD (0-0-1-0)
     Route: 048
  17. DIMETHINDENE [Concomitant]
     Active Substance: DIMETHINDENE
     Dosage: 1 MILLIGRAM, BID, 1 MG, 1-0-1-0, GEL
     Route: 061

REACTIONS (12)
  - Dysphagia [Recovering/Resolving]
  - Dyspnoea [Recovering/Resolving]
  - Pain [Recovering/Resolving]
  - Condition aggravated [Recovering/Resolving]
  - General physical health deterioration [Recovering/Resolving]
  - Rash [Recovering/Resolving]
  - Pruritus [Recovering/Resolving]
  - Renal impairment [Unknown]
  - Hyperkalaemia [Unknown]
  - Oral candidiasis [Recovering/Resolving]
  - Acute kidney injury [Unknown]
  - Testicular swelling [Unknown]
